FAERS Safety Report 4595544-6 (Version None)
Quarter: 2005Q1

REPORT INFORMATION
  Report Type: 
  Country: None (occurrence: None)
  Receive Date: 20050224
  Receipt Date: 20050209
  Transmission Date: 20050727
  Serious: Yes (Other)
  Sender: FDA-Public Use
  Company Number: USA040363542

PATIENT
  Age: 81 Year
  Sex: Female

DRUGS (1)
  1. FORTEO [Suspect]
     Indication: OSTEOPOROSIS
     Dates: start: 20040329

REACTIONS (4)
  - BLOOD CALCIUM INCREASED [None]
  - INJECTION SITE ERYTHEMA [None]
  - PARATHYROIDECTOMY [None]
  - PHARMACEUTICAL PRODUCT COMPLAINT [None]
